FAERS Safety Report 7949465-9 (Version None)
Quarter: 2011Q4

REPORT INFORMATION
  Report Type: 
  Country: None (occurrence: None)
  Receive Date: 20111130
  Receipt Date: 20111125
  Transmission Date: 20120403
  Serious: Yes (Other)
  Sender: FDA-Public Use
  Company Number: JP-GLAXOSMITHKLINE-B0765586A

PATIENT
  Age: 7 Decade
  Sex: Female

DRUGS (7)
  1. LAMICTAL [Suspect]
     Dosage: 100MG PER DAY
     Route: 048
  2. LAMICTAL [Suspect]
     Dosage: 150MG PER DAY
     Route: 048
  3. LITHIUM CARBONATE [Concomitant]
     Route: 048
  4. LAMICTAL [Suspect]
     Dosage: 50MG PER DAY
     Route: 048
  5. LAMICTAL [Suspect]
     Dosage: 75MG PER DAY
     Route: 048
  6. LAMICTAL [Suspect]
     Dosage: 125MG PER DAY
     Route: 048
  7. LAMICTAL [Suspect]
     Indication: BIPOLAR I DISORDER
     Dosage: 25MG PER DAY
     Route: 048

REACTIONS (1)
  - SKIN DISORDER [None]
